FAERS Safety Report 10777584 (Version 2)
Quarter: 2016Q1

REPORT INFORMATION
  Report Type: Spontaneous
  Country: US (occurrence: US)
  Receive Date: 20150209
  Receipt Date: 20160321
  Transmission Date: 20160525
  Serious: Yes (Disabling, Other)
  Sender: FDA-Public Use
  Company Number: US-009507513-1502USA003608

PATIENT
  Sex: Male
  Weight: 91.61 kg

DRUGS (3)
  1. FINASTERIDE. [Suspect]
     Active Substance: FINASTERIDE
     Indication: BENIGN PROSTATIC HYPERPLASIA
     Dosage: 5 MG, UNK
     Route: 048
     Dates: start: 201003, end: 201202
  2. FINASTERIDE. [Suspect]
     Active Substance: FINASTERIDE
     Indication: BENIGN PROSTATIC HYPERPLASIA
     Dosage: 5 MG, UNKNOWN
     Route: 048
     Dates: start: 20060703, end: 201205
  3. PROSCAR [Suspect]
     Active Substance: FINASTERIDE
     Indication: BENIGN PROSTATIC HYPERPLASIA
     Dosage: 5 MG, UNK
     Route: 048
     Dates: start: 20031009, end: 200506

REACTIONS (26)
  - Erectile dysfunction [Not Recovered/Not Resolved]
  - Osteopenia [Unknown]
  - Hypercholesterolaemia [Unknown]
  - Barrett^s oesophagus [Unknown]
  - Appendicectomy [Unknown]
  - Rhinitis allergic [Unknown]
  - Muscle spasms [Unknown]
  - Bladder cancer [Unknown]
  - Depression [Unknown]
  - Low density lipoprotein increased [Unknown]
  - Excessive cerumen production [Unknown]
  - Inner ear inflammation [Unknown]
  - Hypertriglyceridaemia [Unknown]
  - Thoracic outlet syndrome [Unknown]
  - Ileus [Unknown]
  - Sinusitis [Unknown]
  - Sleep apnoea syndrome [Unknown]
  - Intervertebral disc degeneration [Unknown]
  - Hepatic steatosis [Unknown]
  - Ventricular extrasystoles [Unknown]
  - Large intestine polyp [Unknown]
  - Rotator cuff syndrome [Unknown]
  - Plantar fasciitis [Unknown]
  - Carpal tunnel syndrome [Unknown]
  - Restless legs syndrome [Unknown]
  - Oesophagogastric fundoplasty [Unknown]

NARRATIVE: CASE EVENT DATE: 2005
